FAERS Safety Report 7907929-8 (Version None)
Quarter: 2011Q4

REPORT INFORMATION
  Report Type: 
  Country: None (occurrence: None)
  Receive Date: 20111110
  Receipt Date: 20111108
  Transmission Date: 20120403
  Serious: Yes (Other)
  Sender: FDA-Public Use
  Company Number: US-TEVA-303918USA

PATIENT
  Sex: Female

DRUGS (9)
  1. PROVIGIL [Concomitant]
  2. LEVOTHYROXINE SODIUM [Concomitant]
  3. DARVOCET [Concomitant]
  4. CRESTOR [Concomitant]
  5. NEXIUM [Concomitant]
  6. COPAXONE [Suspect]
     Indication: MULTIPLE SCLEROSIS
     Dosage: 20 MILLIGRAM;
     Route: 058
     Dates: start: 20090601, end: 20100614
  7. FLEXERIL [Concomitant]
  8. CYMBALTA [Concomitant]
  9. TOVIAZ [Concomitant]

REACTIONS (8)
  - NAUSEA [None]
  - URINARY INCONTINENCE [None]
  - HYPOTENSION [None]
  - DYSPNOEA [None]
  - ANAPHYLACTIC REACTION [None]
  - RASH [None]
  - HYPOAESTHESIA [None]
  - CHEST DISCOMFORT [None]
